FAERS Safety Report 9028544 (Version 2)
Quarter: 2013Q3

REPORT INFORMATION
  Report Type: Spontaneous
  Country: US (occurrence: US)
  Receive Date: 20130124
  Receipt Date: 20130903
  Transmission Date: 20140515
  Serious: No
  Sender: FDA-Public Use
  Company Number: US-ASTRAZENECA-2003UW11992

PATIENT
  Age: 73 Year
  Sex: Female
  Weight: 65.8 kg

DRUGS (13)
  1. NEXIUM [Suspect]
     Indication: GASTROOESOPHAGEAL REFLUX DISEASE
     Route: 048
  2. PRILOSEC [Suspect]
     Indication: GASTROOESOPHAGEAL REFLUX DISEASE
     Dosage: EVENING IF SHE NEEDS
     Route: 048
  3. HCTZ [Suspect]
     Indication: HYPERTENSION
     Route: 065
  4. CELEBREX [Concomitant]
     Dosage: AS REQUIRED
  5. MYLANTA [Concomitant]
  6. ALLEGRA [Concomitant]
     Dosage: AS REQUIRED
  7. XANAX [Concomitant]
  8. VITAMIN E [Concomitant]
  9. MULTIVITAMIN [Concomitant]
  10. ASA [Concomitant]
  11. CALCIUM [Concomitant]
  12. BENICAR [Concomitant]
     Indication: HYPERTENSION
  13. LIPITOR [Concomitant]
     Indication: BLOOD CHOLESTEROL INCREASED

REACTIONS (7)
  - Sinusitis [Unknown]
  - Nasal dryness [Unknown]
  - Dysgraphia [Unknown]
  - Hypertension [Unknown]
  - Blood cholesterol increased [Unknown]
  - Dry mouth [Unknown]
  - Intentional drug misuse [Unknown]
